FAERS Safety Report 6236362-2 (Version None)
Quarter: 2009Q2

REPORT INFORMATION
  Report Type: 
  Country: None (occurrence: None)
  Receive Date: 20090619
  Receipt Date: 20090610
  Transmission Date: 20091009
  Serious: Yes (Other)
  Sender: FDA-Public Use
  Company Number: CA-JNJFOC-20090605303

PATIENT
  Age: 55 Year
  Sex: Male

DRUGS (13)
  1. DARUNAVIR [Suspect]
     Indication: HIV INFECTION
     Route: 048
  2. RALTEGRAVIR [Suspect]
     Indication: HIV INFECTION
     Route: 065
  3. RITONAVIR [Suspect]
     Indication: HIV INFECTION
     Route: 065
  4. PAROXETINE HCL [Interacting]
     Indication: DRUG USE FOR UNKNOWN INDICATION
     Route: 065
  5. 3TC [Concomitant]
     Route: 065
  6. ABACAVIR [Concomitant]
     Route: 065
  7. NEVIRAPINE [Concomitant]
     Route: 065
  8. BUPROPION HCL [Concomitant]
     Route: 065
  9. CLONAZEPAM [Concomitant]
     Route: 065
  10. DEXEDRINE [Concomitant]
     Route: 065
  11. LITHIUM CARBONATE [Concomitant]
     Route: 065
  12. LORAZEPAM [Concomitant]
     Route: 065
  13. OLANZAPINE [Concomitant]
     Route: 065

REACTIONS (2)
  - DEPRESSION [None]
  - DRUG INTERACTION [None]
